FAERS Safety Report 7116949-5 (Version None)
Quarter: 2010Q4

REPORT INFORMATION
  Report Type: 
  Country: None (occurrence: None)
  Receive Date: 20101122
  Receipt Date: 20101108
  Transmission Date: 20110411
  Serious: Yes (Death)
  Sender: FDA-Public Use
  Company Number: US-ACTELION-A-US2010-41006

PATIENT

DRUGS (4)
  1. BOSENTAN TABLET UNKNOWN US MG [Suspect]
     Indication: PULMONARY ARTERIAL HYPERTENSION
     Dosage: 125
     Route: 048
     Dates: start: 20090614, end: 20101001
  2. BOSENTAN TABLET UNKNOWN US MG [Suspect]
     Dosage: 62.5
     Route: 048
     Dates: start: 20090514, end: 20090613
  3. CALCIUM CHANNEL BLOCKERS [Concomitant]
  4. COUMADIN [Concomitant]

REACTIONS (1)
  - DEATH [None]
